FAERS Safety Report 8818913 (Version 1)
Quarter: 2012Q4

REPORT INFORMATION
  Report Type: Spontaneous
  Country: AT (occurrence: None)
  Receive Date: 20121002
  Receipt Date: 20121002
  Transmission Date: 20130627
  Serious: Yes (Death, Life-Threatening, Hospitalization)
  Sender: FDA-Public Use
  Company Number: FK201202412

PATIENT
  Age: 66 Year
  Sex: Male

DRUGS (2)
  1. PROPOFOL [Suspect]
     Indication: ENDOSCOPIC RETROGRADE CHOLANGIOPANCREATOGRAPHY
     Route: 042
     Dates: start: 20120730, end: 20120730
  2. PROPOFOL [Suspect]
     Indication: ENDOSCOPIC RETROGRADE CHOLANGIOPANCREATOGRAPHY
     Route: 042
     Dates: start: 20120731, end: 20120731

REACTIONS (4)
  - Hepatic failure [None]
  - Renal failure [None]
  - Sepsis [None]
  - Hepatorenal syndrome [None]
